FAERS Safety Report 23130986 (Version 2)
Quarter: 2023Q4

REPORT INFORMATION
  Report Type: Report from Study
  Country: NZ (occurrence: NZ)
  Receive Date: 20231031
  Receipt Date: 20231106
  Transmission Date: 20240109
  Serious: Yes (Hospitalization)
  Sender: FDA-Public Use
  Company Number: NZ-ABBVIE-5468857

PATIENT
  Age: 46 Year
  Sex: Male
  Weight: 96 kg

DRUGS (22)
  1. UPADACITINIB [Suspect]
     Active Substance: UPADACITINIB
     Indication: Dermatitis atopic
     Route: 048
     Dates: start: 20230815, end: 20231026
  2. UPADACITINIB [Suspect]
     Active Substance: UPADACITINIB
     Indication: Dermatitis atopic
     Route: 048
     Dates: start: 20231103
  3. PARAFFIN LIQUID 20%+ PARAFFIN SOFT WHITE 50% + WAX-EMULSIFYING 30%, BP [Concomitant]
     Indication: Dermatitis atopic
     Dosage: TIME INTERVAL: 0.33333333 DAYS: DOSE: 1 APPLICATION
     Route: 061
     Dates: start: 2003
  4. ALPHA KERI BATH [Concomitant]
     Indication: Dermatitis atopic
     Dosage: TIME INTERVAL: AS NECESSARY: DOSE: 1 APPLICATION
     Route: 061
     Dates: start: 2003
  5. 50%WSP/50%LIQUID PARAFFIN [Concomitant]
     Indication: Dermatitis atopic
     Dosage: TIME INTERVAL: AS NECESSARY
     Route: 061
     Dates: start: 2003
  6. LORATADINE [Concomitant]
     Active Substance: LORATADINE
     Indication: Dermatitis atopic
     Route: 048
     Dates: start: 2003
  7. PREDNISONE [Concomitant]
     Active Substance: PREDNISONE
     Indication: Atopic keratoconjunctivitis
     Dosage: TIME INTERVAL: AS NECESSARY
     Route: 047
     Dates: start: 2018
  8. NAPHAZOLINE HYDROCHLORIDE [Concomitant]
     Active Substance: NAPHAZOLINE HYDROCHLORIDE
     Indication: Atopic keratoconjunctivitis
     Route: 047
     Dates: start: 2018
  9. ALBUTEROL [Concomitant]
     Active Substance: ALBUTEROL
     Indication: Asthma
     Dosage: TIME INTERVAL: AS NECESSARY
     Route: 055
     Dates: start: 1980
  10. BLASTIX WOUND [Concomitant]
     Indication: Dermatitis atopic
     Dosage: TIME INTERVAL: AS NECESSARY: DOSE: 1 APPLICATION
     Route: 061
     Dates: start: 20230804
  11. VITAMIN A PALMITATE [Concomitant]
     Active Substance: VITAMIN A PALMITATE
     Indication: Keratoconus
     Dosage: TIME INTERVAL: AS NECESSARY: DOSE: 1 APPLICATION
     Route: 047
     Dates: start: 2013
  12. OMEPRAZOLE [Concomitant]
     Active Substance: OMEPRAZOLE
     Indication: Reflux gastritis
     Route: 048
     Dates: start: 2006
  13. QUETIAPINE [Concomitant]
     Active Substance: QUETIAPINE
     Indication: Insomnia
     Dosage: DOSE: EVERY EVENING
     Route: 048
     Dates: start: 2015
  14. BUTYLSCOPOLAMINE BROMIDE [Concomitant]
     Active Substance: BUTYLSCOPOLAMINE BROMIDE
     Indication: Abdominal pain upper
     Dosage: TIME INTERVAL: AS NECESSARY
     Route: 048
     Dates: start: 20230511
  15. FAMOTIDINE [Concomitant]
     Active Substance: FAMOTIDINE
     Indication: Reflux gastritis
     Dosage: TIME INTERVAL: AS NECESSARY
     Route: 048
     Dates: start: 2022
  16. FELODIPINE [Concomitant]
     Active Substance: FELODIPINE
     Indication: Hypertension
     Route: 048
     Dates: start: 2019
  17. CANDESARTAN [Concomitant]
     Active Substance: CANDESARTAN
     Indication: Hypertension
     Route: 048
     Dates: start: 201912
  18. ATORVASTATIN [Concomitant]
     Active Substance: ATORVASTATIN
     Indication: Hyperlipidaemia
     Route: 048
     Dates: start: 2013
  19. CRYSTADERM [Concomitant]
     Indication: Folliculitis
     Dosage: DOSE: 1 APPLICATION
     Route: 061
     Dates: start: 20230823
  20. ARISTOCORT [Concomitant]
     Active Substance: TRIAMCINOLONE DIACETATE
     Indication: Eczema
     Dosage: DOSE: 1 APPLICATION
     Route: 061
     Dates: start: 20230824
  21. BETA OINTMENT [Concomitant]
     Indication: Eczema
     Dosage: DOSE: 1 APPLICATION
     Route: 061
     Dates: start: 20230928
  22. 2% KETOCONAZOLE SHAMPOO [Concomitant]
     Indication: Seborrhoeic dermatitis
     Dosage: DOSE: 1 APPLICATION
     Route: 061
     Dates: start: 20231012

REACTIONS (1)
  - Erysipelas [Recovered/Resolved]

NARRATIVE: CASE EVENT DATE: 20231026
